FAERS Safety Report 4976854-7 (Version None)
Quarter: 2006Q2

REPORT INFORMATION
  Report Type: 
  Country: None (occurrence: None)
  Receive Date: 20060418
  Receipt Date: 20060418
  Transmission Date: 20061013
  Serious: Yes (Other)
  Sender: FDA-Public Use
  Company Number: None

PATIENT
  Sex: Male
  Weight: 117.4816 kg

DRUGS (3)
  1. ZYPREXA [Suspect]
     Indication: DEPRESSION
     Dosage: 30 MG DAILY DAILY
     Dates: start: 19990801, end: 20051231
  2. ZYPREXA [Suspect]
     Indication: SCHIZOPHRENIA
     Dosage: 30 MG DAILY DAILY
     Dates: start: 19990801, end: 20051231
  3. ZYPREXA [Suspect]
     Indication: SLEEP DISORDER
     Dosage: 30 MG DAILY DAILY
     Dates: start: 19990801, end: 20051231

REACTIONS (2)
  - PURULENCE [None]
  - SKIN LESION [None]
